FAERS Safety Report 7183327-2 (Version None)
Quarter: 2010Q4

REPORT INFORMATION
  Report Type: 
  Country: None (occurrence: None)
  Receive Date: 20101222
  Receipt Date: 20100216
  Transmission Date: 20110411
  Serious: No
  Sender: FDA-Public Use
  Company Number: A0844722A

PATIENT
  Age: 69 Year
  Sex: Male

DRUGS (13)
  1. TRIZIVIR [Suspect]
     Indication: HIV INFECTION
     Route: 048
     Dates: start: 20000101
  2. LIPITOR [Concomitant]
  3. CARDIZEM [Concomitant]
  4. MAXZIDE [Concomitant]
  5. INDOMETHACINE [Concomitant]
  6. RANITIDINE [Concomitant]
  7. GABAPENTIN [Concomitant]
  8. ALBUTEROL [Concomitant]
  9. UNKNOWN NEBULIZER MEDICATION [Concomitant]
  10. NASACORT [Concomitant]
  11. ASPIRIN [Concomitant]
  12. POTASSIUM GLUTAMATE [Concomitant]
  13. CENTRUM SILVER [Concomitant]

REACTIONS (2)
  - DYSPNOEA [None]
  - WAIST CIRCUMFERENCE INCREASED [None]
